FAERS Safety Report 18395879 (Version 3)
Quarter: 2020Q4

REPORT INFORMATION
  Report Type: Report from Study
  Country: US (occurrence: US)
  Receive Date: 20201018
  Receipt Date: 20201218
  Transmission Date: 20210114
  Serious: Yes (Disabling)
  Sender: FDA-Public Use
  Company Number: US-BIOGEN-2020BI00935119

PATIENT
  Sex: Female

DRUGS (1)
  1. TYSABRI [Suspect]
     Active Substance: NATALIZUMAB
     Indication: MULTIPLE SCLEROSIS
     Route: 065
     Dates: start: 20121213

REACTIONS (2)
  - Multiple sclerosis [Not Recovered/Not Resolved]
  - Memory impairment [Unknown]
